FAERS Safety Report 18655566 (Version 5)
Quarter: 2021Q2

REPORT INFORMATION
  Report Type: Spontaneous
  Country: US (occurrence: US)
  Receive Date: 20201223
  Receipt Date: 20210626
  Transmission Date: 20210717
  Serious: Yes (Congenital Anomaly, Other)
  Sender: FDA-Public Use
  Company Number: NVSC2020US339629

PATIENT
  Sex: Male

DRUGS (1)
  1. ZOFRAN ODT [Suspect]
     Active Substance: ONDANSETRON HYDROCHLORIDE
     Indication: FOETAL EXPOSURE DURING PREGNANCY
     Route: 064

REACTIONS (61)
  - Congenital heart valve disorder [Unknown]
  - Speech sound disorder [Unknown]
  - Nasal congestion [Unknown]
  - Patent ductus arteriosus [Unknown]
  - Pulmonary valve stenosis [Unknown]
  - Neonatal tachypnoea [Unknown]
  - Injury [Unknown]
  - Constipation [Unknown]
  - Hypotension [Unknown]
  - Atelectasis [Unknown]
  - Stomatitis [Unknown]
  - Vomiting [Unknown]
  - Upper limb fracture [Unknown]
  - Rash [Unknown]
  - Hypermetropia [Unknown]
  - Sunburn [Unknown]
  - Abdominal pain [Unknown]
  - Pulmonary valve thickening [Unknown]
  - Limb crushing injury [Unknown]
  - Cellulitis [Unknown]
  - Pyrexia [Unknown]
  - Pain in extremity [Unknown]
  - Arthropod bite [Unknown]
  - Dermatitis contact [Unknown]
  - Dermatophytosis of nail [Unknown]
  - Heart disease congenital [Unknown]
  - Pulmonary valve incompetence [Unknown]
  - Deafness [Unknown]
  - Skin disorder [Unknown]
  - Viral infection [Unknown]
  - Supravalvular aortic stenosis [Unknown]
  - Foetal exposure during pregnancy [Unknown]
  - Cough [Unknown]
  - Upper respiratory tract infection [Unknown]
  - Conjunctivitis allergic [Unknown]
  - Astigmatism [Unknown]
  - Asthenia [Unknown]
  - Congenital arterial malformation [Unknown]
  - Ebstein^s anomaly [Unknown]
  - Right ventricular hypertrophy [Unknown]
  - Failure to thrive [Unknown]
  - Learning disability [Unknown]
  - Developmental delay [Unknown]
  - Dental caries [Unknown]
  - Acute sinusitis [Unknown]
  - Language disorder [Unknown]
  - Pericardial effusion [Unknown]
  - Neurofibroma [Unknown]
  - Cardiomegaly [Unknown]
  - Short stature [Unknown]
  - Oral candidiasis [Unknown]
  - Otitis media [Unknown]
  - Epistaxis [Unknown]
  - Headache [Unknown]
  - Optic glioma [Unknown]
  - Sinus tachycardia [Unknown]
  - Dermatitis diaper [Unknown]
  - Paronychia [Unknown]
  - Ear pain [Unknown]
  - Pharyngitis streptococcal [Unknown]
  - Coordination abnormal [Unknown]
